FAERS Safety Report 5583396-7 (Version None)
Quarter: 2008Q1

REPORT INFORMATION
  Report Type: 
  Country: None (occurrence: None)
  Receive Date: 20080107
  Receipt Date: 20071226
  Transmission Date: 20080703
  Serious: Yes (Other)
  Sender: FDA-Public Use
  Company Number: US-PFIZER INC-2007107922

PATIENT
  Sex: Female
  Weight: 84.8 kg

DRUGS (2)
  1. ZOLOFT [Suspect]
     Indication: ANXIETY
     Route: 048
  2. ZOLOFT [Suspect]
     Indication: PANIC DISORDER

REACTIONS (1)
  - MULTIPLE SCLEROSIS [None]
